FAERS Safety Report 22535427 (Version 2)
Quarter: 2024Q2

REPORT INFORMATION
  Report Type: Spontaneous
  Country: US (occurrence: US)
  Receive Date: 20230608
  Receipt Date: 20240522
  Transmission Date: 20240716
  Serious: Yes (Death, Hospitalization, Other)
  Sender: FDA-Public Use
  Company Number: US-PFIZER INC-202300214155

PATIENT
  Age: 76 Year
  Sex: Female
  Weight: 83.46 kg

DRUGS (3)
  1. VYNDAMAX [Suspect]
     Active Substance: TAFAMIDIS
     Indication: Amyloidosis
     Dosage: 61 MG, 1X/DAY
     Route: 048
     Dates: start: 20220309
  2. VYNDAMAX [Suspect]
     Active Substance: TAFAMIDIS
     Indication: Amyloidosis
  3. BISOPROLOL [Concomitant]
     Active Substance: BISOPROLOL\BISOPROLOL FUMARATE
     Indication: Blood pressure abnormal
     Dosage: 5 MG, 1X/DAY
     Route: 048

REACTIONS (7)
  - Death [Fatal]
  - Heart rate decreased [Recovering/Resolving]
  - Loss of consciousness [Recovering/Resolving]
  - Fall [Unknown]
  - Blood pressure decreased [Recovering/Resolving]
  - Chest pain [Unknown]
  - Mobility decreased [Unknown]

NARRATIVE: CASE EVENT DATE: 20230320
